FAERS Safety Report 18904250 (Version 1)
Quarter: 2021Q1

REPORT INFORMATION
  Report Type: Spontaneous
  Country: CA (occurrence: CA)
  Receive Date: 20210217
  Receipt Date: 20210217
  Transmission Date: 20210420
  Serious: Yes (Other)
  Sender: FDA-Public Use
  Company Number: CA-ROCHE-2771005

PATIENT
  Age: 63 Year
  Sex: Male

DRUGS (3)
  1. PREDNISONE. [Suspect]
     Active Substance: PREDNISONE
     Indication: PEMPHIGUS
     Route: 065
  2. RITUXIMAB. [Suspect]
     Active Substance: RITUXIMAB
     Indication: PEMPHIGUS
     Route: 065
  3. METHOTREXATE. [Suspect]
     Active Substance: METHOTREXATE
     Indication: PEMPHIGUS
     Route: 065

REACTIONS (5)
  - Disease progression [Unknown]
  - Ulcer [Unknown]
  - Off label use [Unknown]
  - Product use in unapproved indication [Unknown]
  - Mouth ulceration [Unknown]
